FAERS Safety Report 15013047 (Version 3)
Quarter: 2018Q3

REPORT INFORMATION
  Report Type: Report from Study
  Country: BR (occurrence: BR)
  Receive Date: 20180614
  Receipt Date: 20180918
  Transmission Date: 20181010
  Serious: Yes (Other)
  Sender: FDA-Public Use
  Company Number: PHHY2016BR030431

PATIENT
  Age: 69 Year
  Sex: Female
  Weight: 71 kg

DRUGS (5)
  1. GLIFAGE [Concomitant]
     Active Substance: METFORMIN HYDROCHLORIDE
     Indication: DIABETES MELLITUS
     Dosage: 2 DF, QD (10 YEARS AGO)
     Route: 048
  2. LOSARTAN. [Concomitant]
     Active Substance: LOSARTAN
     Indication: HYPERTENSION
     Dosage: 2 DF, QD (10 YEARS AGO)
     Route: 048
  3. SANDOSTATIN LAR DEPOT [Suspect]
     Active Substance: OCTREOTIDE ACETATE
     Dosage: 30 MG, QMO
     Route: 030
     Dates: start: 2010
  4. SANDOSTATIN LAR DEPOT [Suspect]
     Active Substance: OCTREOTIDE ACETATE
     Dosage: 1 DF, QMO (28 DAYS)
     Route: 030
  5. SANDOSTATIN LAR DEPOT [Suspect]
     Active Substance: OCTREOTIDE ACETATE
     Indication: ACROMEGALY
     Dosage: 20 MG, QMO
     Route: 030

REACTIONS (17)
  - Urinary tract infection [Not Recovered/Not Resolved]
  - Toothache [Unknown]
  - Feeling abnormal [Not Recovered/Not Resolved]
  - Emotional disorder [Unknown]
  - Spinal disorder [Recovering/Resolving]
  - Speech disorder [Not Recovered/Not Resolved]
  - Areflexia [Not Recovered/Not Resolved]
  - Pain [Unknown]
  - Insulin-like growth factor increased [Unknown]
  - Hormone level abnormal [Unknown]
  - Trigeminal neuralgia [Recovering/Resolving]
  - Arthralgia [Unknown]
  - Blood growth hormone increased [Unknown]
  - Memory impairment [Not Recovered/Not Resolved]
  - Blood glucose abnormal [Recovering/Resolving]
  - Mood swings [Unknown]
  - Weight decreased [Recovering/Resolving]

NARRATIVE: CASE EVENT DATE: 201806
